FAERS Safety Report 16196027 (Version 3)
Quarter: 2020Q3

REPORT INFORMATION
  Report Type: Spontaneous
  Country: FR (occurrence: FR)
  Receive Date: 20190415
  Receipt Date: 20200706
  Transmission Date: 20201102
  Serious: Yes (Other)
  Sender: FDA-Public Use
  Company Number: FR-BRISTOL-MYERS SQUIBB COMPANY-BMS-2019-034687

PATIENT
  Age: 50 Year
  Sex: Male

DRUGS (1)
  1. OPDIVO [Suspect]
     Active Substance: NIVOLUMAB
     Indication: NEUROENDOCRINE TUMOUR OF THE LUNG
     Dosage: 240 MILLIGRAM, Q2WK
     Route: 065

REACTIONS (4)
  - Hypothyroidism [Unknown]
  - Hyperthyroidism [Unknown]
  - Intentional product use issue [Unknown]
  - Diabetes mellitus [Unknown]
